FAERS Safety Report 7763492-6 (Version None)
Quarter: 2011Q3

REPORT INFORMATION
  Report Type: 
  Country: None (occurrence: None)
  Receive Date: 20110920
  Receipt Date: 20110912
  Transmission Date: 20111222
  Serious: Yes (Death, Life-Threatening, Hospitalization)
  Sender: FDA-Public Use
  Company Number: US-MILLENNIUM PHARMACEUTICALS, INC.-2011-03500

PATIENT
  Sex: Male
  Weight: 102.6 kg

DRUGS (27)
  1. CIPROFLOXACIN [Concomitant]
     Indication: INFECTION PROPHYLAXIS
     Dosage: 500 MG, BID
     Route: 048
  2. FILGRASTIM [Concomitant]
     Indication: WHITE BLOOD CELL COUNT
     Dosage: 480 UG, QD
     Route: 058
  3. HEPARIN [Concomitant]
     Indication: PROPHYLAXIS
     Dosage: 2 ML, QD
  4. VITAMIN D [Concomitant]
     Indication: SUPPLEMENTATION THERAPY
     Dosage: 1000 UNK, QD
     Route: 048
  5. RITUXIMAB [Suspect]
     Indication: MANTLE CELL LYMPHOMA
     Dosage: 750 MG, CYCLIC
     Route: 042
     Dates: start: 20110701, end: 20110726
  6. VINCRISTINE [Suspect]
     Indication: MANTLE CELL LYMPHOMA
     Dosage: 2 MG, CYCLIC
     Route: 042
     Dates: start: 20110705, end: 20110712
  7. FLUCONAZOLE [Concomitant]
     Indication: INFECTION PROPHYLAXIS
     Dosage: 100 MG, QD
     Route: 048
  8. SENOKOT [Concomitant]
     Indication: CONSTIPATION
     Dosage: UNK
     Route: 048
  9. CYCLOPHOSPHAMIDE [Suspect]
     Indication: MANTLE CELL LYMPHOMA
     Dosage: 603 MG, CYCLIC
     Route: 042
     Dates: start: 20110702, end: 20110704
  10. DEXAMETHASONE [Suspect]
     Indication: MANTLE CELL LYMPHOMA
     Dosage: 40 MG, CYCLIC
  11. METHYLPREDNISOLONE [Concomitant]
     Indication: PRODUCT USED FOR UNKNOWN INDICATION
     Dosage: UNK
     Route: 048
  12. PREVIDENT [Concomitant]
     Indication: DENTAL CARE
     Dosage: 1.1 %, QD
  13. VITAMIN C                          /00008001/ [Concomitant]
     Indication: SUPPLEMENTATION THERAPY
     Dosage: UNK
     Route: 048
  14. ADRIAMYCIN PFS [Suspect]
     Indication: MANTLE CELL LYMPHOMA
     Dosage: 101 MG, CYCLIC
     Route: 042
     Dates: start: 20110705, end: 20110705
  15. PERIOGARD [Concomitant]
     Indication: DENTAL CARE
     Dosage: 15 ML, BID
  16. COMPAZINE [Concomitant]
     Indication: PROPHYLAXIS OF NAUSEA AND VOMITING
     Dosage: 10 MG, PRN
     Route: 048
  17. VELCADE [Suspect]
     Indication: MANTLE CELL LYMPHOMA
     Dosage: 2.6 MG, CYCLIC
     Route: 040
     Dates: start: 20110701, end: 20110726
  18. METHOTREXATE [Suspect]
     Indication: MANTLE CELL LYMPHOMA
     Dosage: 400 MG, CYCLIC
     Route: 042
     Dates: end: 20110727
  19. CYTARABINE [Suspect]
     Indication: MANTLE CELL LYMPHOMA
     Dosage: 6 G, CYCLIC
     Route: 042
     Dates: end: 20110730
  20. FERROUS SULFATE TAB [Concomitant]
     Indication: SUPPLEMENTATION THERAPY
     Dosage: 325 MG, QD
     Route: 048
  21. ULTRAM [Concomitant]
     Indication: PAIN
     Dosage: 50 MG, PRN
     Route: 048
  22. METHOTREXATE [Suspect]
     Dosage: 1600 MG, CYCLIC
     Route: 042
     Dates: end: 20110728
  23. DEXAMETHASONE [Suspect]
     Dosage: 20 UNK, UNK
     Route: 048
     Dates: end: 20110715
  24. OMEPRAZOLE [Concomitant]
     Indication: GASTROOESOPHAGEAL REFLUX DISEASE
     Dosage: 20 MG, BID
     Route: 048
  25. TRIAMCINOLONE ACETONIDE [Concomitant]
     Indication: RASH
     Dosage: UNK
     Route: 061
  26. VALTREX [Concomitant]
     Indication: INFECTION PROPHYLAXIS
     Dosage: 500 MG, QD
     Route: 048
  27. MESNA [Concomitant]
     Indication: MANTLE CELL LYMPHOMA

REACTIONS (58)
  - PROTHROMBIN TIME PROLONGED [None]
  - ALANINE AMINOTRANSFERASE INCREASED [None]
  - BLOOD BICARBONATE INCREASED [None]
  - PO2 INCREASED [None]
  - URINARY TRACT INFECTION [None]
  - PULMONARY OEDEMA [None]
  - APHASIA [None]
  - CENTRAL NERVOUS SYSTEM LESION [None]
  - RENAL HAEMORRHAGE [None]
  - URETERIC HAEMORRHAGE [None]
  - PO2 DECREASED [None]
  - BONE PAIN [None]
  - BLOOD FIBRINOGEN INCREASED [None]
  - STAPHYLOCOCCUS TEST POSITIVE [None]
  - HEPATIC CONGESTION [None]
  - INFECTION [None]
  - FIBRIN D DIMER INCREASED [None]
  - LUNG INFECTION [None]
  - PETECHIAE [None]
  - STATUS EPILEPTICUS [None]
  - INTESTINAL MASS [None]
  - TROPONIN I INCREASED [None]
  - ANAEMIA [None]
  - BLOOD PH INCREASED [None]
  - PUPILS UNEQUAL [None]
  - ACTIVATED PARTIAL THROMBOPLASTIN TIME PROLONGED [None]
  - SPLEEN CONGESTION [None]
  - ESCHERICHIA SEPSIS [None]
  - RESPIRATORY FAILURE [None]
  - PANCYTOPENIA [None]
  - PYREXIA [None]
  - RIB FRACTURE [None]
  - DILATATION VENTRICULAR [None]
  - VENTRICULAR HYPOKINESIA [None]
  - BLOOD BILIRUBIN INCREASED [None]
  - PCO2 DECREASED [None]
  - TACHYCARDIA [None]
  - GAZE PALSY [None]
  - BLOOD UREA INCREASED [None]
  - PUPIL FIXED [None]
  - PULMONARY CONGESTION [None]
  - MENTAL STATUS CHANGES [None]
  - BLOOD SODIUM DECREASED [None]
  - AREFLEXIA [None]
  - BLOOD ELECTROLYTES ABNORMAL [None]
  - METABOLIC ENCEPHALOPATHY [None]
  - CARDIOMEGALY [None]
  - HEPATOSPLENOMEGALY [None]
  - CARDIO-RESPIRATORY ARREST [None]
  - THROMBOCYTOPENIA [None]
  - ASPARTATE AMINOTRANSFERASE INCREASED [None]
  - BLOOD CHLORIDE DECREASED [None]
  - ATELECTASIS [None]
  - PUPILLARY REFLEX IMPAIRED [None]
  - TOXIC ENCEPHALOPATHY [None]
  - PAIN IN EXTREMITY [None]
  - HAEMOTHORAX [None]
  - PANCREATIC DISORDER [None]
